FAERS Safety Report 21619168 (Version 2)
Quarter: 2023Q1

REPORT INFORMATION
  Report Type: Spontaneous
  Country: US (occurrence: US)
  Receive Date: 20221120
  Receipt Date: 20230313
  Transmission Date: 20230418
  Serious: No
  Sender: FDA-Public Use
  Company Number: US-JNJFOC-20221108333

PATIENT
  Sex: Female
  Weight: 115.77 kg

DRUGS (1)
  1. TREMFYA [Suspect]
     Active Substance: GUSELKUMAB
     Indication: Psoriasis
     Route: 058
     Dates: start: 202208

REACTIONS (4)
  - Needle issue [Unknown]
  - Viral infection [Unknown]
  - Accidental exposure to product [Unknown]
  - Product dose omission issue [Unknown]
